FAERS Safety Report 15342983 (Version 4)
Quarter: 2022Q2

REPORT INFORMATION
  Report Type: Spontaneous
  Country: PT (occurrence: PT)
  Receive Date: 20180903
  Receipt Date: 20220514
  Transmission Date: 20220721
  Serious: Yes (Other)
  Sender: FDA-Public Use
  Company Number: PT-AUROBINDO-AUR-APL-2018-039412

PATIENT
  Age: 33 Year
  Sex: Female
  Weight: 130 kg

DRUGS (28)
  1. NIFEDIPINE [Suspect]
     Active Substance: NIFEDIPINE
     Indication: Hypertension
     Dosage: UNK
     Route: 065
  2. PANTOPRAZOLE [Suspect]
     Active Substance: PANTOPRAZOLE
     Indication: Gastric disorder
     Dosage: 20 MILLIGRAM, ONCE A DAY
     Route: 048
     Dates: start: 20170703
  3. PANTOPRAZOLE [Suspect]
     Active Substance: PANTOPRAZOLE
     Indication: Prophylaxis
  4. AZATHIOPRINE [Suspect]
     Active Substance: AZATHIOPRINE
     Indication: Immune thrombocytopenia
     Dosage: 150 MILLIGRAM, ONCE A DAY
     Route: 048
     Dates: start: 20170712, end: 20170731
  5. AZATHIOPRINE [Suspect]
     Active Substance: AZATHIOPRINE
     Indication: Immune thrombocytopenia
     Dosage: UNK UNK, 1MG/KG ONCE A DAY, 1 MG/KG, QD, TOTAL DOSAGE 150MG/DAY
     Route: 065
  6. DEXAMETHASONE [Suspect]
     Active Substance: DEXAMETHASONE
     Indication: Immune thrombocytopenia
     Dosage: 6 MILLIGRAM, DAILY
     Route: 042
     Dates: start: 20170711, end: 20170712
  7. DEXAMETHASONE [Suspect]
     Active Substance: DEXAMETHASONE
     Dosage: 24 MILLIGRAM, ONCE A DAY
     Route: 042
     Dates: start: 20170711, end: 20170712
  8. ELTROMBOPAG [Suspect]
     Active Substance: ELTROMBOPAG
     Indication: Immune thrombocytopenia
     Dosage: 50 MILLIGRAM, DAILY
     Route: 048
     Dates: start: 20170718, end: 201707
  9. ELTROMBOPAG [Suspect]
     Active Substance: ELTROMBOPAG
     Dosage: 12.5 MILLIGRAM, DAILY
     Route: 048
     Dates: start: 20170804, end: 20170814
  10. ELTROMBOPAG [Suspect]
     Active Substance: ELTROMBOPAG
     Dosage: 25 MILLIGRAM, ONCE A DAY
     Route: 048
     Dates: start: 20170731, end: 2017
  11. ELTROMBOPAG [Suspect]
     Active Substance: ELTROMBOPAG
     Dosage: UNK (ELTROMBOPAG AND CORTICOTHERAPY WERE TAPERED) ()
     Route: 048
  12. ELTROMBOPAG [Suspect]
     Active Substance: ELTROMBOPAG
     Dosage: 25 UNK, (25 MG EVERY OTHER DAY)
     Route: 048
  13. ENOXAPARIN [Suspect]
     Active Substance: ENOXAPARIN
     Indication: Immune thrombocytopenia
     Dosage: 120 MILLIGRAM, DAILY
     Route: 065
  14. ENOXAPARIN [Suspect]
     Active Substance: ENOXAPARIN
     Indication: Thrombosis prophylaxis
     Dosage: 80 MILLIGRAM, ONCE A DAY
     Route: 065
  15. ENOXAPARIN [Suspect]
     Active Substance: ENOXAPARIN
     Dosage: 90 MILLIGRAM, ONCE A DAY
     Route: 065
  16. ENOXAPARIN [Suspect]
     Active Substance: ENOXAPARIN
  17. METHYLPREDNISOLONE [Suspect]
     Active Substance: METHYLPREDNISOLONE
     Indication: Immune thrombocytopenia
     Dosage: 90 MILLIGRAM, ONCE A DAY
     Route: 065
  18. METHYLPREDNISOLONE [Suspect]
     Active Substance: METHYLPREDNISOLONE
     Indication: Immune thrombocytopenia
     Dosage: UNK UNK, ONCE A DAY 1 MG/KG, QD
     Route: 065
  19. MISOPROSTOL [Suspect]
     Active Substance: MISOPROSTOL
     Indication: Labour induction
     Dosage: UNK
     Route: 065
  20. PREDNISOLONE [Suspect]
     Active Substance: PREDNISOLONE
     Indication: Immune thrombocytopenia
     Dosage: 120 MILLIGRAM, DAILY
     Route: 048
     Dates: start: 20170707
  21. PREDNISOLONE [Suspect]
     Active Substance: PREDNISOLONE
     Dosage: 80 MILLIGRAM, ONCE A DAY
     Route: 048
     Dates: start: 20170703
  22. PREDNISOLONE [Suspect]
     Active Substance: PREDNISOLONE
     Dosage: 120 MILLIGRAM, DAILY
     Route: 048
     Dates: start: 20170725
  23. PREDNISOLONE [Suspect]
     Active Substance: PREDNISOLONE
     Dosage: 40 MILLIGRAM, DAILY
     Route: 048
     Dates: start: 20170808, end: 20170816
  24. PREDNISOLONE [Suspect]
     Active Substance: PREDNISOLONE
     Dosage: 160 MILLIGRAM, DAILY
     Route: 048
     Dates: start: 20170711
  25. PREDNISOLONE [Suspect]
     Active Substance: PREDNISOLONE
     Dosage: 80 MILLIGRAM, DAILY
     Route: 048
     Dates: start: 20170731
  26. HUMAN IMMUNOGLOBULIN G [Suspect]
     Active Substance: HUMAN IMMUNOGLOBULIN G
     Indication: Immune thrombocytopenia
     Dosage: UNK, 1000 MG/KG 4 DOSES
     Route: 042
  27. HUMAN IMMUNOGLOBULIN G [Concomitant]
     Active Substance: HUMAN IMMUNOGLOBULIN G
     Indication: Immune thrombocytopenia
     Dosage: 1 UNK, (1GR/KG 4 DOSIS)
     Route: 065
  28. IRON [Concomitant]
     Active Substance: IRON
     Indication: Anaemia
     Dosage: UNK
     Route: 042

REACTIONS (7)
  - Exposure during pregnancy [Unknown]
  - Pre-eclampsia [Unknown]
  - Anaemia [Unknown]
  - Drug ineffective [Unknown]
  - Premature delivery [Unknown]
  - Infection [Unknown]
  - Haematuria [Unknown]
